FAERS Safety Report 6008447-7 (Version None)
Quarter: 2008Q4

REPORT INFORMATION
  Report Type: 
  Country: None (occurrence: None)
  Receive Date: 20081217
  Receipt Date: 20081202
  Transmission Date: 20090506
  Serious: Yes (Other)
  Sender: FDA-Public Use
  Company Number: AT-GENENTECH-272739

PATIENT
  Age: 71 Year
  Sex: Female

DRUGS (2)
  1. LUCENTIS [Suspect]
     Indication: MACULAR DEGENERATION
     Dosage: 0.5 MG, UNK
     Route: 031
  2. VERTEPORFIN [Suspect]
     Indication: MACULAR DEGENERATION
     Route: 031

REACTIONS (1)
  - VISUAL ACUITY REDUCED [None]
